FAERS Safety Report 9884882 (Version 2)
Quarter: 2014Q1

REPORT INFORMATION
  Report Type: Spontaneous
  Country: US (occurrence: US)
  Receive Date: 20140210
  Receipt Date: 20140210
  Transmission Date: 20141002
  Serious: No
  Sender: FDA-Public Use
  Company Number: US-ALLERGAN-1318220US

PATIENT
  Age: 39 Year
  Sex: Female

DRUGS (3)
  1. BOTOX [Suspect]
     Indication: TORTICOLLIS
     Dosage: 360 UNITS, SINGLE
     Route: 030
     Dates: start: 20131023, end: 20131023
  2. BOTOX [Suspect]
     Dosage: 150 UNITS, SINGLE
     Route: 030
     Dates: start: 201307, end: 201307
  3. CLARITIN                           /00413701/ [Concomitant]
     Indication: SEASONAL ALLERGY
     Dosage: 1, QD
     Route: 048

REACTIONS (5)
  - Paralysis [Recovering/Resolving]
  - Choking [Recovering/Resolving]
  - Mobility decreased [Unknown]
  - Dysphagia [Recovered/Resolved]
  - Muscular weakness [Recovered/Resolved]
